FAERS Safety Report 8905563 (Version 1)
Quarter: 2012Q4

REPORT INFORMATION
  Report Type: 
  Country: DE (occurrence: DE)
  Receive Date: 20121109
  Receipt Date: 20121109
  Transmission Date: 20130627
  Serious: Yes (Hospitalization, Other)
  Sender: FDA-Public Use
  Company Number: PHHY2011DE117432

PATIENT
  Age: 34 Year
  Sex: Female
  Weight: 65 kg

DRUGS (4)
  1. GILENYA [Suspect]
     Indication: MULTIPLE SCLEROSIS
     Dosage: 0.5 mg, daily
     Route: 048
     Dates: start: 20110719
  2. GILENYA [Suspect]
     Dosage: 0.5 mg, QOD
     Route: 048
  3. MICROGYNON [Concomitant]
     Dosage: UNK UKN, UNK
  4. VESIKUR [Concomitant]
     Dosage: 5 mg, UNK
     Dates: start: 2010

REACTIONS (7)
  - Erythema multiforme [Unknown]
  - Blister [Not Recovered/Not Resolved]
  - Induration [Not Recovered/Not Resolved]
  - Hyperkalaemia [Recovering/Resolving]
  - White blood cell count decreased [Not Recovered/Not Resolved]
  - Lymphocyte count decreased [Not Recovered/Not Resolved]
  - Inappropriate schedule of drug administration [Unknown]
